FAERS Safety Report 4311481-6 (Version None)
Quarter: 2004Q1

REPORT INFORMATION
  Report Type: 
  Country: None (occurrence: None)
  Receive Date: 20040303
  Receipt Date: 20040303
  Transmission Date: 20041129
  Serious: Yes (Hospitalization)
  Sender: FDA-Public Use
  Company Number: None

PATIENT
  Age: 87 Year
  Sex: Male
  Weight: 63 kg

DRUGS (6)
  1. WAFARIN 5 MG TAB [Suspect]
     Indication: ATRIAL FIBRILLATION
     Dosage: 5 MG DAILY ORAL
     Route: 048
     Dates: start: 20031202, end: 20031206
  2. AZITHROMYCIN 250 MG TAB [Suspect]
     Indication: UPPER RESPIRATORY TRACT INFECTION
     Dosage: 250 MG DAILY ORAL
     Route: 048
     Dates: start: 20031202, end: 20031206
  3. DIGOXIN [Concomitant]
  4. FUROSEMIDE [Concomitant]
  5. LISINOPRIL [Concomitant]
  6. SPIRONOLACTONE [Concomitant]

REACTIONS (9)
  - ASTHENIA [None]
  - COUGH [None]
  - FALL [None]
  - HAEMATURIA [None]
  - HYPOTENSION [None]
  - INTERNATIONAL NORMALISED RATIO INCREASED [None]
  - PAIN [None]
  - PYREXIA [None]
  - RESPIRATORY DISORDER [None]
